FAERS Safety Report 14858171 (Version 1)
Quarter: 2018Q2

REPORT INFORMATION
  Report Type: Spontaneous
  Country: FR (occurrence: FR)
  Receive Date: 20180508
  Receipt Date: 20180508
  Transmission Date: 20180711
  Serious: Yes (Other)
  Sender: FDA-Public Use
  Company Number: FR-ORION CORPORATION ORION PHARMA-TREX2018-1390

PATIENT
  Sex: Male

DRUGS (2)
  1. IMETH [Suspect]
     Active Substance: METHOTREXATE SODIUM
     Dosage: 7.5-10 MG
     Route: 065
  2. NORDIMET [Suspect]
     Active Substance: METHOTREXATE
     Dosage: 7.5-10 MG
     Route: 065

REACTIONS (3)
  - White blood cell count decreased [Recovered/Resolved]
  - Drug intolerance [Unknown]
  - Neutrophil count decreased [Recovered/Resolved]
